FAERS Safety Report 7835537-6 (Version None)
Quarter: 2011Q4

REPORT INFORMATION
  Report Type: 
  Country: None (occurrence: None)
  Receive Date: 20111024
  Receipt Date: 20111017
  Transmission Date: 20120403
  Serious: Yes (Hospitalization)
  Sender: FDA-Public Use
  Company Number: PHHY2010MX38861

PATIENT
  Age: 72 Year
  Sex: Female
  Weight: 50 kg

DRUGS (3)
  1. MICARDIS HCT [Concomitant]
     Dosage: UNK UKN, UNK
  2. ARAVA [Concomitant]
     Dosage: UNK UKN, UNK
  3. ZOLEDRONOC ACID [Suspect]
     Indication: OSTEOPOROSIS
     Dosage: 5 MG, UNK (PER YEAR)
     Route: 042
     Dates: start: 20100201

REACTIONS (9)
  - ABDOMINAL PAIN UPPER [None]
  - WEIGHT DECREASED [None]
  - GASTROINTESTINAL INFECTION [None]
  - VOMITING [None]
  - NAUSEA [None]
  - DECREASED APPETITE [None]
  - DIARRHOEA [None]
  - HELICOBACTER INFECTION [None]
  - MALAISE [None]
